FAERS Safety Report 26095107 (Version 1)
Quarter: 2025Q4

REPORT INFORMATION
  Report Type: Spontaneous
  Country: CA (occurrence: CA)
  Receive Date: 20251127
  Receipt Date: 20251127
  Transmission Date: 20260117
  Serious: Yes (Life-Threatening, Hospitalization)
  Sender: ACCORD
  Company Number: None

PATIENT
  Age: 68 Year
  Sex: Female
  Weight: 128 kg

DRUGS (28)
  1. METHOTREXATE [Suspect]
     Active Substance: METHOTREXATE
     Indication: Rheumatoid arthritis
     Dosage: 1 EVERY 1 WEEK
     Route: 048
  2. AMIODARONE [Concomitant]
     Active Substance: AMIODARONE
  3. BISOPROLOL [Concomitant]
     Active Substance: BISOPROLOL
  4. CALCIUM\VITAMIN D [Concomitant]
     Active Substance: CALCIUM\VITAMIN D
  5. CEFTAZIDIME [Concomitant]
     Active Substance: CEFTAZIDIME
     Dosage: POWDER FOR SOLUTION
  6. DEXILANT [Concomitant]
     Active Substance: DEXLANSOPRAZOLE
     Dosage: DELAYED RELEASE
  7. DOXYCYCLINE [Concomitant]
     Active Substance: DOXYCYCLINE
  8. DULOXETINE [Concomitant]
     Active Substance: DULOXETINE
     Dosage: DELAYED RELEASE
     Route: 048
  9. ELIQUIS [Concomitant]
     Active Substance: APIXABAN
  10. FLUTICASONE [Concomitant]
     Active Substance: FLUTICASONE
     Dosage: SPRAY, METERED DOSE
  11. FOLIC ACID [Concomitant]
     Active Substance: FOLIC ACID
  12. FUROSEMIDE [Concomitant]
     Active Substance: FUROSEMIDE
  13. HYDROMORPHONE [Concomitant]
     Active Substance: HYDROMORPHONE
  14. LEVOFLOXACIN [Concomitant]
     Active Substance: LEVOFLOXACIN
  15. LEVOTHYROXINE [Concomitant]
     Active Substance: LEVOTHYROXINE
  16. LORAZEPAM [Concomitant]
     Active Substance: LORAZEPAM
  17. MELOXICAM [Concomitant]
     Active Substance: MELOXICAM
  18. METFORMIN [Concomitant]
     Active Substance: METFORMIN HYDROCHLORIDE
  19. METOCLOPRAMIDE [Concomitant]
     Active Substance: METOCLOPRAMIDE
  20. MONTELUKAST [Concomitant]
     Active Substance: MONTELUKAST
  21. VITAMINS [Concomitant]
     Active Substance: VITAMINS
  22. POLYETHYLENE GLYCOL [Concomitant]
     Active Substance: POLYETHYLENE GLYCOL
  23. PREGABALIN [Concomitant]
     Active Substance: PREGABALIN
  24. ALBUTEROL [Concomitant]
     Active Substance: ALBUTEROL
     Dosage: LIQUID
     Route: 042
  25. SPIRONOLACTONE [Concomitant]
     Active Substance: SPIRONOLACTONE
  26. FLUTICASONE FUROATE\UMECLIDINIUM BROMIDE\VILANTEROL TRIFENATATE [Concomitant]
     Active Substance: FLUTICASONE FUROATE\UMECLIDINIUM BROMIDE\VILANTEROL TRIFENATATE
     Route: 065
  27. VENLAFAXINE HYDROCHLORIDE [Concomitant]
     Active Substance: VENLAFAXINE HYDROCHLORIDE
  28. ZINC [Concomitant]
     Active Substance: ZINC

REACTIONS (4)
  - Acute kidney injury [Not Recovered/Not Resolved]
  - Pancytopenia [Not Recovered/Not Resolved]
  - Stomatitis [Not Recovered/Not Resolved]
  - Hepatic encephalopathy [Not Recovered/Not Resolved]
